FAERS Safety Report 13806180 (Version 2)
Quarter: 2017Q3

REPORT INFORMATION
  Report Type: Spontaneous
  Country: JP (occurrence: JP)
  Receive Date: 20170728
  Receipt Date: 20170810
  Transmission Date: 20171127
  Serious: Yes (Other)
  Sender: FDA-Public Use
  Company Number: JP-PFIZER INC-2017323467

PATIENT
  Age: 47 Year
  Sex: Female

DRUGS (7)
  1. PACLITAXEL. [Suspect]
     Active Substance: PACLITAXEL
     Indication: BREAST CANCER STAGE II
     Dosage: 80 MG/M2, CYCLIC (WEEKLY)
  2. CYCLOPHOSPHAMIDE. [Concomitant]
     Active Substance: CYCLOPHOSPHAMIDE
     Indication: BREAST CANCER STAGE II
     Dosage: 500 MG/M2, CYCLIC (DAY 1, EVERY 3 WEEKS)
  3. EPIRUBICIN [Concomitant]
     Active Substance: EPIRUBICIN
     Indication: BREAST CANCER STAGE II
     Dosage: 100 MG/M2, CYCLIC (DAY 1, EVERY 3 WEEKS)
  4. TAMOXIFEN [Concomitant]
     Active Substance: TAMOXIFEN
     Indication: BREAST CANCER STAGE II
     Dosage: UNK
  5. PACLITAXEL. [Suspect]
     Active Substance: PACLITAXEL
     Dosage: 90 MG/M2, CYCLIC (ON DAYS 1, 8, AND 15)
  6. FLUOROURACIL. [Concomitant]
     Active Substance: FLUOROURACIL
     Indication: BREAST CANCER STAGE II
     Dosage: 500 MG/M2, CYCLIC (DAY 1, EVERY 3 WEEKS)
  7. BEVACIZUMAB. [Suspect]
     Active Substance: BEVACIZUMAB
     Indication: BREAST CANCER STAGE II
     Dosage: 10 MG/KG, CYCLIC (ON DAYS 1 AND 15, EVERY 4 WEEKS)

REACTIONS (1)
  - Cystoid macular oedema [Recovered/Resolved]
